FAERS Safety Report 7091037-5 (Version None)
Quarter: 2010Q4

REPORT INFORMATION
  Report Type: 
  Country: None (occurrence: None)
  Receive Date: 20101109
  Receipt Date: 20100920
  Transmission Date: 20110411
  Serious: Yes (Other)
  Sender: FDA-Public Use
  Company Number: US-B.I. PHARMACEUTICALS,INC./RIDGEFIELD-2010-BP-10630BP

PATIENT
  Age: 71 Year
  Sex: Female

DRUGS (4)
  1. MIRAPEX [Suspect]
     Indication: PARKINSON'S DISEASE
     Dosage: 1.5 MG
     Route: 048
     Dates: end: 20100901
  2. TYLENOL [Concomitant]
     Indication: INTERVERTEBRAL DISC PROTRUSION
  3. QUVAR [Concomitant]
     Indication: ASTHMA
  4. SELEGILINE [Concomitant]
     Indication: PARKINSON'S DISEASE
     Dosage: 5 MG

REACTIONS (4)
  - DIABETES MELLITUS [None]
  - HALLUCINATION, VISUAL [None]
  - SOMNOLENCE [None]
  - SQUAMOUS CELL CARCINOMA OF SKIN [None]
